FAERS Safety Report 15555785 (Version 1)
Quarter: 2018Q4

REPORT INFORMATION
  Report Type: Spontaneous
  Country: US (occurrence: US)
  Receive Date: 20181022
  Receipt Date: 20181022
  Transmission Date: 20190205
  Serious: No
  Sender: FDA-Public Use
  Company Number: None

PATIENT
  Age: 76 Year
  Sex: Female

DRUGS (7)
  1. DIPHENOXYLATE [Concomitant]
     Active Substance: DIPHENOXYLATE
  2. ONDANSETRON [Concomitant]
     Active Substance: ONDANSETRON
  3. LONSURF [Suspect]
     Active Substance: TIPIRACIL HYDROCHLORIDE\TRIFLURIDINE
     Indication: METASTASIS
     Dosage: ?          OTHER STRENGTH:20 - 8.19 MG;?
     Route: 048
     Dates: start: 20180920
  4. POTASSIUM [Concomitant]
     Active Substance: POTASSIUM
  5. PEDIALYTE [Concomitant]
     Active Substance: POTASSIUM CITRATE\SODIUM CITRATE\ZINC
  6. GABAPENTIN. [Concomitant]
     Active Substance: GABAPENTIN
  7. DORZOLAMIDE [Concomitant]
     Active Substance: DORZOLAMIDE

REACTIONS (1)
  - Diarrhoea [None]
